FAERS Safety Report 4687518-1 (Version None)
Quarter: 2005Q2

REPORT INFORMATION
  Report Type: 
  Country: None (occurrence: None)
  Receive Date: 20050610
  Receipt Date: 20050601
  Transmission Date: 20051028
  Serious: Yes (Death)
  Sender: FDA-Public Use
  Company Number: US-KINGPHARMUSA00001-K200500734

PATIENT
  Age: 83 Year
  Sex: Male

DRUGS (7)
  1. ALTACE [Suspect]
     Dosage: 10 MG, QD
     Route: 048
     Dates: start: 20030101
  2. DI-ANTALVIC [Suspect]
     Dosage: 1 TABLET, BID
     Route: 048
     Dates: start: 20030101
  3. RYTHMODAN [Concomitant]
  4. SINTROM [Concomitant]
  5. TAPAZOL [Concomitant]
  6. FORLAX [Concomitant]
  7. CIPRALEX  DEN/ [Concomitant]

REACTIONS (1)
  - SUDDEN DEATH [None]
